FAERS Safety Report 15539195 (Version 7)
Quarter: 2019Q1

REPORT INFORMATION
  Report Type: Spontaneous
  Country: US (occurrence: US)
  Receive Date: 20181022
  Receipt Date: 20190122
  Transmission Date: 20190417
  Serious: Yes (Hospitalization, Other)
  Sender: FDA-Public Use
  Company Number: US-ACTELION-A-NJ2018-170037

PATIENT
  Age: 77 Year
  Sex: Female

DRUGS (6)
  1. SPIRONOLACTONE. [Concomitant]
     Active Substance: SPIRONOLACTONE
  2. LASIX [Concomitant]
     Active Substance: FUROSEMIDE
  3. UPTRAVI [Suspect]
     Active Substance: SELEXIPAG
     Dosage: 400 MCG, BID
     Route: 048
  4. ORENITRAM [Concomitant]
     Active Substance: TREPROSTINIL
  5. UPTRAVI [Suspect]
     Active Substance: SELEXIPAG
     Indication: PRODUCT USED FOR UNKNOWN INDICATION
     Dosage: 800 MCG, BID
     Route: 048
  6. AMBRISENTAN [Suspect]
     Active Substance: AMBRISENTAN
     Indication: PRODUCT USED FOR UNKNOWN INDICATION
     Dosage: 10 MG, QD
     Route: 065
     Dates: start: 20140807

REACTIONS (11)
  - Abdominal pain upper [Unknown]
  - Loss of consciousness [Unknown]
  - Pain in jaw [Unknown]
  - Headache [Unknown]
  - Unevaluable event [Unknown]
  - Dizziness [Not Recovered/Not Resolved]
  - Unresponsive to stimuli [Unknown]
  - Syncope [Unknown]
  - Diarrhoea [Not Recovered/Not Resolved]
  - Hypotension [Unknown]
  - Dysarthria [Unknown]

NARRATIVE: CASE EVENT DATE: 20180907
